FAERS Safety Report 4627679-3 (Version None)
Quarter: 2005Q2

REPORT INFORMATION
  Report Type: 
  Country: None (occurrence: None)
  Receive Date: 20050401
  Receipt Date: 20050401
  Transmission Date: 20051028
  Serious: Yes (Hospitalization)
  Sender: FDA-Public Use
  Company Number: None

PATIENT
  Age: 65 Year
  Sex: Female
  Weight: 57 kg

DRUGS (4)
  1. CYMBALTA [Suspect]
     Indication: DEPRESSION
     Dosage: 60MG DAILY ORAL
     Route: 048
     Dates: start: 20050115, end: 20050116
  2. MIRTAZAPINE [Suspect]
     Indication: DEPRESSION
     Dosage: 15MG DAILY ORAL
     Route: 048
     Dates: start: 20040101, end: 20040116
  3. EXELON [Concomitant]
  4. ?CHINESE HERBAL MEDICINE [Concomitant]

REACTIONS (1)
  - GRAND MAL CONVULSION [None]
